FAERS Safety Report 5124200-0 (Version None)
Quarter: 2006Q4

REPORT INFORMATION
  Report Type: 
  Country: None (occurrence: None)
  Receive Date: 20061010
  Receipt Date: 20060929
  Transmission Date: 20070319
  Serious: Yes (Hospitalization)
  Sender: FDA-Public Use
  Company Number: 2006SE05221

PATIENT
  Age: 74 Year
  Sex: Female

DRUGS (6)
  1. BLOPRESS [Suspect]
     Route: 048
  2. LANSOPRAZOLE [Suspect]
     Indication: REFLUX OESOPHAGITIS
     Route: 048
  3. ARTIST [Concomitant]
     Route: 048
  4. ASPIRIN [Concomitant]
     Route: 048
  5. FLUITRAN [Concomitant]
     Route: 048
  6. HORIZON [Concomitant]
     Route: 065

REACTIONS (1)
  - LEUKOPLAKIA [None]
